FAERS Safety Report 9434141 (Version 1)
Quarter: 2013Q3

REPORT INFORMATION
  Report Type: Spontaneous
  Country: US (occurrence: US)
  Receive Date: 20130801
  Receipt Date: 20130801
  Transmission Date: 20140515
  Serious: Yes (Other)
  Sender: FDA-Public Use
  Company Number: US-MERCK-1307USA016298

PATIENT
  Sex: Male

DRUGS (3)
  1. PEGINTRON [Suspect]
     Indication: HEPATITIS C
     Dosage: REDIPEN
     Dates: start: 20010101, end: 20010601
  2. REBETOL [Suspect]
     Indication: HEPATITIS C
     Dosage: UNK
     Dates: start: 20010101, end: 20011001
  3. PEGASYS [Suspect]
     Indication: HEPATITIS C
     Dosage: UNK
     Dates: start: 20010602, end: 20011001

REACTIONS (6)
  - Transient ischaemic attack [Recovered/Resolved]
  - Red blood cell count decreased [Recovered/Resolved]
  - Pruritus [Recovered/Resolved]
  - White blood cell count decreased [Recovered/Resolved]
  - Urticaria [Recovered/Resolved]
  - Drug ineffective [Unknown]
